FAERS Safety Report 14165297 (Version 1)
Quarter: 2017Q4

REPORT INFORMATION
  Report Type: Spontaneous
  Country: FR (occurrence: FR)
  Receive Date: 20171107
  Receipt Date: 20171107
  Transmission Date: 20180321
  Serious: Yes (Other)
  Sender: FDA-Public Use
  Company Number: FR-TEVA-820990ROM

PATIENT
  Sex: Female

DRUGS (2)
  1. COPAXONE [Suspect]
     Active Substance: GLATIRAMER ACETATE
     Indication: MULTIPLE SCLEROSIS
     Dosage: STARTED ABOUT ONE MONTH EARLIER
     Dates: start: 2017
  2. AMOXICILLIN. [Suspect]
     Active Substance: AMOXICILLIN
     Dosage: STARTED ABOUT FIVE MONTHS EARLIER

REACTIONS (5)
  - Muscular weakness [Unknown]
  - Weight increased [Unknown]
  - Multiple sclerosis relapse [Unknown]
  - Nausea [Unknown]
  - Constipation [Unknown]

NARRATIVE: CASE EVENT DATE: 2017
